FAERS Safety Report 5938255-4 (Version None)
Quarter: 2008Q4

REPORT INFORMATION
  Report Type: 
  Country: None (occurrence: None)
  Receive Date: 20081031
  Receipt Date: 20081020
  Transmission Date: 20090506
  Serious: Yes (Life-Threatening)
  Sender: FDA-Public Use
  Company Number: GB-GENENTECH-270444

PATIENT
  Sex: Female

DRUGS (2)
  1. MABTHERA [Suspect]
     Indication: RHEUMATOID ARTHRITIS
     Dosage: 1000 MG, UNK
     Route: 042
  2. MYOCRISIN [Concomitant]
     Indication: RHEUMATOID ARTHRITIS

REACTIONS (3)
  - BRONCHOSPASM [None]
  - NON-CARDIOGENIC PULMONARY OEDEMA [None]
  - SYNCOPE [None]
